FAERS Safety Report 5998875-8 (Version None)
Quarter: 2008Q4

REPORT INFORMATION
  Report Type: 
  Country: None (occurrence: None)
  Receive Date: 20081213
  Receipt Date: 20080806
  Transmission Date: 20090506
  Serious: No
  Sender: FDA-Public Use
  Company Number: US-AMGEN-KDL296565

PATIENT
  Sex: Male
  Weight: 68.6 kg

DRUGS (7)
  1. ENBREL [Suspect]
     Indication: SPONDYLOARTHROPATHY
     Route: 058
     Dates: start: 20080627
  2. XANAX [Concomitant]
  3. CELEBREX [Concomitant]
  4. DILTIAZEM [Concomitant]
  5. NASACORT [Concomitant]
  6. ATROVENT [Concomitant]
  7. FLONASE [Concomitant]

REACTIONS (2)
  - INJECTION SITE PRURITUS [None]
  - PRURITUS GENERALISED [None]
